FAERS Safety Report 8358614-2 (Version None)
Quarter: 2012Q2

REPORT INFORMATION
  Report Type: 
  Country: None (occurrence: None)
  Receive Date: 20120514
  Receipt Date: 20120502
  Transmission Date: 20120825
  Serious: Yes (Other)
  Sender: FDA-Public Use
  Company Number: US-ELI_LILLY_AND_COMPANY-US201204000853

PATIENT
  Sex: Male
  Weight: 153.29 kg

DRUGS (11)
  1. SYMBICORT [Concomitant]
     Dosage: UNK
  2. ASTELIN [Concomitant]
     Indication: SEASONAL ALLERGY
     Dosage: UNK
  3. HYDROCHLOROTHIAZIDE [Concomitant]
     Indication: HYPERTENSION
     Dosage: 50 MG, QD
  4. LISINOPRIL                              /USA/ [Concomitant]
     Indication: HYPERTENSION
     Dosage: 20 MG, QD
  5. NEXIUM [Concomitant]
     Indication: GASTROOESOPHAGEAL REFLUX DISEASE
     Dosage: 40 MG, QD
     Route: 048
  6. METFORMIN HCL [Concomitant]
     Indication: TYPE 2 DIABETES MELLITUS
     Dosage: 850 MG, TID
  7. SIMCOR [Concomitant]
  8. DOXYCYCLINE [Concomitant]
     Dosage: UNK
  9. BYETTA [Suspect]
     Indication: TYPE 2 DIABETES MELLITUS
     Dosage: 5 UG, BID
     Route: 058
     Dates: start: 20071201, end: 20080101
  10. LORATADINE AND PSEUDOEPHEDRINE SULFATE [Concomitant]
     Indication: RHINITIS ALLERGIC
     Dosage: UNK, QD
  11. BYETTA [Suspect]
     Dosage: 10 UG, BID
     Route: 058
     Dates: start: 20080101

REACTIONS (1)
  - OESOPHAGEAL ADENOCARCINOMA [None]
